FAERS Safety Report 5894428-0 (Version None)
Quarter: 2008Q3

REPORT INFORMATION
  Report Type: 
  Country: None (occurrence: None)
  Receive Date: 20080923
  Receipt Date: 20080923
  Transmission Date: 20090109
  Serious: No
  Sender: FDA-Public Use
  Company Number: None

PATIENT
  Sex: Male

DRUGS (1)
  1. SYNTHROID [Suspect]
     Indication: POST PROCEDURAL HYPOTHYROIDISM
     Dosage: 200MCG

REACTIONS (1)
  - NO THERAPEUTIC RESPONSE [None]
